FAERS Safety Report 10382622 (Version 1)
Quarter: 2014Q3

REPORT INFORMATION
  Report Type: Spontaneous
  Country: US (occurrence: US)
  Receive Date: 20140813
  Receipt Date: 20140813
  Transmission Date: 20150326
  Serious: Yes (Hospitalization)
  Sender: FDA-Public Use
  Company Number: US-SA-2014SA004926

PATIENT
  Age: 71 Year
  Sex: Female

DRUGS (2)
  1. ANTITHROMBOTIC AGENTS [Suspect]
     Active Substance: UNSPECIFIED INGREDIENT
     Route: 065
  2. MULTAQ [Suspect]
     Active Substance: DRONEDARONE
     Indication: ATRIAL FIBRILLATION
     Route: 048
     Dates: start: 201308, end: 201310

REACTIONS (6)
  - Mobility decreased [Unknown]
  - Gastrooesophageal reflux disease [Unknown]
  - Drug administration error [Unknown]
  - Asthenia [Recovering/Resolving]
  - Abdominal pain upper [Unknown]
  - Feeling abnormal [Recovering/Resolving]
